FAERS Safety Report 8359167-5 (Version None)
Quarter: 2012Q2

REPORT INFORMATION
  Report Type: 
  Country: None (occurrence: None)
  Receive Date: 20120511
  Receipt Date: 20090721
  Transmission Date: 20120825
  Serious: Yes (Hospitalization)
  Sender: FDA-Public Use
  Company Number: 2012POI057500063

PATIENT
  Age: 67 Year
  Sex: Female
  Weight: 88.9957 kg

DRUGS (14)
  1. ORAMORPH SR [Suspect]
     Indication: ANALGESIC THERAPY
     Dosage: (5 MG, AS REQUIRED)
  2. VALOID [Concomitant]
  3. DUPHALAC [Concomitant]
  4. DEXAMETHASONE [Concomitant]
  5. DIOCTYL (DOCUSATE SODIUM) [Concomitant]
  6. DOMPERIDONE MALEATE (DOMPERIDONE MALEATE) [Concomitant]
  7. LANSOPRAZOLE [Concomitant]
  8. HALOPERIDOL [Concomitant]
  9. CITALOPRAM HYDROBROMIDE [Concomitant]
  10. CAPECITABINE [Suspect]
     Indication: BREAST CANCER
     Dosage: PER ORAL
     Route: 048
     Dates: start: 20081013
  11. HEPSAL (HEPARIN SODIUM) [Concomitant]
  12. ZIMOVANE (ZOPICLONE) [Concomitant]
  13. MILPAR (MAG-LAX) [Concomitant]
  14. INNOHEP [Concomitant]

REACTIONS (3)
  - PAIN [None]
  - FATIGUE [None]
  - HAEMOGLOBIN DECREASED [None]
